FAERS Safety Report 7705325-X (Version None)
Quarter: 2011Q3

REPORT INFORMATION
  Report Type: 
  Country: None (occurrence: None)
  Receive Date: 20110818
  Receipt Date: 20110802
  Transmission Date: 20111222
  Serious: Yes (Hospitalization)
  Sender: FDA-Public Use
  Company Number: 2011MA010859

PATIENT
  Age: 42 Year
  Sex: Female

DRUGS (2)
  1. FEVERALL [Suspect]
     Indication: PAIN
     Dosage: 1 GRAM; BID; IV
     Route: 042
  2. TRAMADOL HCL [Suspect]
     Indication: PAIN
     Dosage: 100 MG; QID; IV
     Route: 042

REACTIONS (2)
  - HYPOCALCAEMIA [None]
  - CONVULSION [None]
